FAERS Safety Report 6313861-6 (Version None)
Quarter: 2009Q3

REPORT INFORMATION
  Report Type: 
  Country: None (occurrence: None)
  Receive Date: 20090818
  Receipt Date: 20090807
  Transmission Date: 20100115
  Serious: Yes (Hospitalization)
  Sender: FDA-Public Use
  Company Number: US-ELI_LILLY_AND_COMPANY-US200802005117

PATIENT
  Sex: Female
  Weight: 85.714 kg

DRUGS (6)
  1. BYETTA [Suspect]
     Indication: TYPE 2 DIABETES MELLITUS
     Dosage: 5 UG, 2/D
     Route: 058
     Dates: start: 20070507
  2. BYETTA [Suspect]
     Dosage: 10 UG, 2/D
     Route: 058
     Dates: start: 20070101
  3. BYETTA [Suspect]
     Dosage: 5 UG, 2/D
     Route: 058
     Dates: start: 20090501
  4. AVANDAMET [Concomitant]
     Indication: DIABETES MELLITUS
     Dosage: UNK, 2/D
  5. GLIPIZIDE [Concomitant]
     Indication: DIABETES MELLITUS
     Dosage: 10 MG, EACH EVENING
  6. CRESTOR [Concomitant]
     Dosage: UNK, UNKNOWN

REACTIONS (5)
  - DRY THROAT [None]
  - HEADACHE [None]
  - HYPERHIDROSIS [None]
  - PHARYNGEAL OPERATION [None]
  - WEIGHT INCREASED [None]
